FAERS Safety Report 4411778-5 (Version None)
Quarter: 2004Q3

REPORT INFORMATION
  Report Type: 
  Country: None (occurrence: None)
  Receive Date: 20040728
  Receipt Date: 20040712
  Transmission Date: 20050211
  Serious: Yes (Death, Other)
  Sender: FDA-Public Use
  Company Number: USA040670213

PATIENT
  Age: 74 Year
  Sex: Male
  Weight: 131 kg

DRUGS (17)
  1. XIGRIS [Suspect]
     Indication: SEPSIS
     Dosage: 24 UG/KG/HR
     Dates: start: 20040613, end: 20040616
  2. VANCOMYCIN HCL [Concomitant]
  3. DOPAMINE HCL [Concomitant]
  4. NEOSYNEPHRINE (PHENYLEPHRINE HYDROCHLORIDE) [Concomitant]
  5. DOBUTAMINE [Concomitant]
  6. LEVOPHED [Concomitant]
  7. INSULIN [Concomitant]
  8. CALCIUM [Concomitant]
  9. MAGNESIUM (MAGNESIUM ASPARTATE) [Concomitant]
  10. PREVACID [Concomitant]
  11. LORAZEPAM [Concomitant]
  12. LEVAQUIN [Concomitant]
  13. EPINEPHRINE [Concomitant]
  14. FORTAZ (CEFTAZIDIME) [Concomitant]
  15. SODIUM BICARBONATE [Concomitant]
  16. SOLU-MEDROL [Concomitant]
  17. K-PHOS (POTASSIUM PHOSPHATE MONOBASIC) [Concomitant]

REACTIONS (3)
  - HAEMODIALYSIS [None]
  - HAEMOGLOBIN DECREASED [None]
  - PLATELET COUNT DECREASED [None]
